FAERS Safety Report 6768586 (Version 2)
Quarter: 2015Q3

REPORT INFORMATION
  Report Type: Spontaneous
  Country: AU (occurrence: AU)
  Receive Date: 20080924
  Receipt Date: 20150902
  Transmission Date: 20151125
  Serious: Yes (Life-Threatening)
  Sender: FDA-Public Use
  Company Number: AU-PFIZER INC-2008076849

PATIENT
  Age: 28 Year
  Sex: Male
  Weight: 110 kg

DRUGS (9)
  1. SOLIAN [Concomitant]
     Active Substance: AMISULPRIDE
     Dosage: 800 MG, DAILY
     Route: 048
  2. CHAMPIX [Suspect]
     Active Substance: VARENICLINE TARTRATE
     Indication: SMOKING CESSATION THERAPY
     Dosage: 2 MG, DAILY
     Route: 048
     Dates: start: 20080528, end: 20080819
  3. TEMAZE [Concomitant]
     Active Substance: TEMAZEPAM
     Dosage: 10 MG, AS NEEDED
     Route: 048
  4. ACIMAX [Concomitant]
     Active Substance: OMEPRAZOLE
     Dosage: 20 MG, DAILY
     Route: 048
  5. PRAZOSIN HYDROCHLORIDE. [Concomitant]
     Active Substance: PRAZOSIN HYDROCHLORIDE
     Dosage: 2 MG, DAILY
     Route: 048
     Dates: start: 20080528
  6. VASOCARDOL [Concomitant]
     Dosage: 240 MG, DAILY
     Route: 048
  7. SEROQUEL [Concomitant]
     Active Substance: QUETIAPINE FUMARATE
     Dosage: 500 MG, DAILY
     Route: 048
  8. MONACE [Concomitant]
     Dosage: 20 MG, DAILY
     Route: 048
     Dates: start: 20061029
  9. MONOPLUS [Concomitant]
     Active Substance: FOSINOPRIL SODIUM\HYDROCHLOROTHIAZIDE
     Dosage: 20/12.5, 1 DF DAILY
     Route: 048
     Dates: start: 20080421

REACTIONS (4)
  - Insomnia [Recovered/Resolved]
  - Suicidal ideation [Recovered/Resolved]
  - Thought broadcasting [Recovered/Resolved]
  - Abnormal dreams [Recovered/Resolved]

NARRATIVE: CASE EVENT DATE: 2008
